FAERS Safety Report 8031283-7 (Version None)
Quarter: 2012Q1

REPORT INFORMATION
  Report Type: 
  Country: None (occurrence: None)
  Receive Date: 20120109
  Receipt Date: 20120103
  Transmission Date: 20120608
  Serious: Yes (Hospitalization)
  Sender: FDA-Public Use
  Company Number: US-GLAXOSMITHKLINE-A0886377A

PATIENT
  Age: 71 Year
  Sex: Male

DRUGS (4)
  1. DIOVAN [Concomitant]
  2. AVANDIA [Suspect]
     Indication: DIABETES MELLITUS
     Dosage: 4MG PER DAY
     Route: 048
     Dates: end: 20100811
  3. METFORMIN HCL [Concomitant]
  4. JANUVIA [Concomitant]

REACTIONS (3)
  - CARDIOVASCULAR DISORDER [None]
  - CARDIAC DISORDER [None]
  - ATRIOVENTRICULAR BLOCK COMPLETE [None]
